FAERS Safety Report 8313298 (Version 4)
Quarter: 2012Q4

REPORT INFORMATION
  Report Type: 
  Country: US (occurrence: US)
  Receive Date: 20111228
  Receipt Date: 20121218
  Transmission Date: 20130627
  Serious: Yes (Hospitalization, Other)
  Sender: FDA-Public Use
  Company Number: US-ELI_LILLY_AND_COMPANY-US201106001797

PATIENT
  Age: 67 Year
  Sex: Female

DRUGS (6)
  1. FORTEO [Suspect]
     Indication: OSTEOPOROSIS
     Dosage: 20 ug, qd
     Route: 065
  2. FORTEO [Suspect]
     Dosage: 20 ug, qd
     Route: 065
  3. FORTEO [Suspect]
     Dosage: 20 ug, qd
     Route: 065
  4. CALCIUM +VIT D [Concomitant]
     Dosage: UNK
  5. DITIZEM [Concomitant]
     Dosage: UNK
  6. HYDROXYCHLOROQUINE [Concomitant]
     Dosage: UNK

REACTIONS (20)
  - Chest crushing [Recovered/Resolved]
  - Tibia fracture [Recovered/Resolved with Sequelae]
  - Fibula fracture [Recovered/Resolved with Sequelae]
  - Injury [Unknown]
  - Bedridden [Not Recovered/Not Resolved]
  - Bone pain [Unknown]
  - Goitre [Unknown]
  - Pain in extremity [Not Recovered/Not Resolved]
  - Musculoskeletal stiffness [Unknown]
  - Myalgia [Unknown]
  - Enchondroma [Unknown]
  - Dysphagia [Unknown]
  - Pain in extremity [Unknown]
  - Arthrofibrosis [Unknown]
  - Spinal column injury [Unknown]
  - Pain [Unknown]
  - Gait disturbance [Unknown]
  - Impaired healing [Unknown]
  - Drug ineffective [Unknown]
  - Complex regional pain syndrome [Unknown]
